FAERS Safety Report 7702131-7 (Version None)
Quarter: 2011Q3

REPORT INFORMATION
  Report Type: 
  Country: None (occurrence: None)
  Receive Date: 20110822
  Receipt Date: 20110809
  Transmission Date: 20111222
  Serious: Yes (Hospitalization)
  Sender: FDA-Public Use
  Company Number: CA-US-EMD SERONO, INC.-7076436

PATIENT
  Sex: Female

DRUGS (3)
  1. REBIF [Suspect]
     Indication: MULTIPLE SCLEROSIS
     Route: 058
     Dates: start: 20060811
  2. AMLODIPINE [Concomitant]
     Indication: HYPERTENSION
     Route: 048
  3. DETROL [Concomitant]
     Indication: BLADDER DISORDER
     Route: 048

REACTIONS (1)
  - BREAST CANCER [None]
